FAERS Safety Report 6596824-5 (Version None)
Quarter: 2010Q1

REPORT INFORMATION
  Report Type: 
  Country: None (occurrence: None)
  Receive Date: 20100223
  Receipt Date: 20100218
  Transmission Date: 20100710
  Serious: Yes (Other)
  Sender: FDA-Public Use
  Company Number: US-ROXANE LABORATORIES, INC.-2010-RO-00174RO

PATIENT
  Age: 50 Year
  Sex: Female

DRUGS (2)
  1. PREDNISONE [Suspect]
     Indication: SCLERITIS
  2. TRIAMCINOLONE ACETONIDE [Suspect]
     Indication: SCLERITIS
     Dosage: 1 ML

REACTIONS (1)
  - SCLERITIS [None]
